FAERS Safety Report 13650556 (Version 10)
Quarter: 2018Q1

REPORT INFORMATION
  Report Type: Spontaneous
  Country: JP (occurrence: JP)
  Receive Date: 20170614
  Receipt Date: 20180312
  Transmission Date: 20180508
  Serious: Yes (Death, Hospitalization, Other)
  Sender: FDA-Public Use
  Company Number: JP-009507513-1706JPN000726J

PATIENT
  Age: 73 Year
  Sex: Male
  Weight: 46 kg

DRUGS (7)
  1. ELIQUIS [Concomitant]
     Active Substance: APIXABAN
     Dosage: 2.5 MG, BID
     Route: 048
     Dates: start: 20170403
  2. MUCODYNE [Concomitant]
     Active Substance: CARBOCYSTEINE
     Indication: SPUTUM INCREASED
     Dosage: 500 MG, TID
     Route: 048
     Dates: start: 20170320
  3. NAIXAN [Concomitant]
     Active Substance: NAPROXEN SODIUM
     Indication: TUMOUR ASSOCIATED FEVER
     Dosage: 200 MG, TID
     Route: 048
     Dates: start: 20170412
  4. TOCLASE [Concomitant]
     Active Substance: PENTOXYVERINE
     Indication: COUGH
     Dosage: 30 MG, TID
     Route: 048
     Dates: start: 20170411
  5. MAINTATE [Concomitant]
     Active Substance: BISOPROLOL FUMARATE
     Dosage: UNK UNK, QD
     Route: 048
     Dates: start: 20170403
  6. MUCOSOLVAN [Concomitant]
     Active Substance: AMBROXOL HYDROCHLORIDE
     Indication: SPUTUM INCREASED
     Dosage: 15 MG, TID
     Route: 048
     Dates: start: 20170330
  7. KEYTRUDA [Suspect]
     Active Substance: PEMBROLIZUMAB
     Indication: SQUAMOUS CELL CARCINOMA OF LUNG
     Dosage: 200 MG, Q3W
     Route: 041
     Dates: start: 20170330, end: 20170601

REACTIONS (2)
  - Autoimmune colitis [Not Recovered/Not Resolved]
  - Malignant neoplasm progression [Fatal]

NARRATIVE: CASE EVENT DATE: 2017
